FAERS Safety Report 8738701 (Version 2)
Quarter: 2012Q4

REPORT INFORMATION
  Report Type: Spontaneous
  Country: US (occurrence: None)
  Receive Date: 20120805
  Receipt Date: 20121003
  Transmission Date: 20130627
  Serious: Yes (Life-Threatening, Hospitalization)
  Sender: FDA-Public Use
  Company Number: 2012-002787

PATIENT
  Age: 19 Year
  Sex: Female

DRUGS (1)
  1. LOESTRIN 24 FE [Suspect]
     Indication: CONTRACEPTION
     Dosage: ORAL
     Route: 048
     Dates: start: 20120625, end: 20120724

REACTIONS (4)
  - Paranoia [None]
  - Hallucination, visual [None]
  - Anxiety [None]
  - Suicidal ideation [None]
